FAERS Safety Report 7449002-1 (Version None)
Quarter: 2011Q2

REPORT INFORMATION
  Report Type: 
  Country: None (occurrence: None)
  Receive Date: 20110429
  Receipt Date: 20110420
  Transmission Date: 20111010
  Serious: Yes (Hospitalization, Disabling)
  Sender: FDA-Public Use
  Company Number: US-MERCK-1001USA03436

PATIENT
  Age: 79 Year
  Sex: Female
  Weight: 63 kg

DRUGS (4)
  1. ALENDRONATE SODIUM [Suspect]
     Route: 048
     Dates: start: 20091201
  2. FOSAMAX [Suspect]
     Indication: OSTEOPOROSIS
     Route: 048
     Dates: start: 19971221, end: 20001203
  3. FOSAMAX [Suspect]
     Route: 048
     Dates: start: 20010127, end: 20071208
  4. FOSAMAX [Suspect]
     Route: 048
     Dates: start: 20080806

REACTIONS (28)
  - FEMUR FRACTURE [None]
  - STRESS FRACTURE [None]
  - FALL [None]
  - HYPERLIPIDAEMIA [None]
  - LIMB ASYMMETRY [None]
  - ARTHRALGIA [None]
  - NEUROPATHY PERIPHERAL [None]
  - LIMB DEFORMITY [None]
  - GAIT DISTURBANCE [None]
  - ARTHRITIS [None]
  - FOOT DEFORMITY [None]
  - URINARY TRACT INFECTION [None]
  - ANAEMIA [None]
  - OSTEOPOROSIS [None]
  - ARTHROPATHY [None]
  - BLOOD POTASSIUM DECREASED [None]
  - MUSCULAR WEAKNESS [None]
  - PERONEAL NERVE PALSY [None]
  - HYPOAESTHESIA [None]
  - HYPERTENSION [None]
  - HYPERCHOLESTEROLAEMIA [None]
  - DYSLIPIDAEMIA [None]
  - PARKINSONISM [None]
  - TENDINOUS CONTRACTURE [None]
  - VASCULAR CALCIFICATION [None]
  - LOW TURNOVER OSTEOPATHY [None]
  - ONYCHOMYCOSIS [None]
  - SPINAL OSTEOARTHRITIS [None]
